FAERS Safety Report 8184170-8 (Version None)
Quarter: 2012Q1

REPORT INFORMATION
  Report Type: 
  Country: None (occurrence: None)
  Receive Date: 20120305
  Receipt Date: 20120213
  Transmission Date: 20120608
  Serious: Yes (Other)
  Sender: FDA-Public Use
  Company Number: IL-ROCHE-1039323

PATIENT
  Age: 59 Year
  Sex: Female

DRUGS (5)
  1. AVASTIN [Suspect]
     Indication: COLON CANCER METASTATIC
     Route: 065
  2. STEROID NOS [Concomitant]
     Indication: UVEITIS
  3. FLUOROURACIL [Concomitant]
     Indication: COLON CANCER METASTATIC
  4. LEUCOVORIN CALCIUM [Concomitant]
     Indication: COLON CANCER METASTATIC
  5. OXALIPLATIN [Concomitant]
     Indication: COLON CANCER METASTATIC

REACTIONS (1)
  - VIRAL UVEITIS [None]
